FAERS Safety Report 5565434-0 (Version None)
Quarter: 2007Q4

REPORT INFORMATION
  Report Type: 
  Country: None (occurrence: None)
  Receive Date: 20071218
  Receipt Date: 20071206
  Transmission Date: 20080405
  Serious: Yes (Hospitalization)
  Sender: FDA-Public Use
  Company Number: US-PFIZER INC-2007086017

PATIENT
  Age: 88 Year
  Sex: Female

DRUGS (1)
  1. TRIAZOLAM [Suspect]

REACTIONS (2)
  - DRUG DEPENDENCE [None]
  - UNEVALUABLE EVENT [None]
